FAERS Safety Report 12656214 (Version 1)
Quarter: 2016Q3

REPORT INFORMATION
  Report Type: Spontaneous
  Country: US (occurrence: US)
  Receive Date: 20160816
  Receipt Date: 20160816
  Transmission Date: 20161109
  Serious: No
  Sender: FDA-Public Use
  Company Number: US-GALDERMA-US16000511

PATIENT
  Age: 58 Year
  Sex: Female

DRUGS (1)
  1. METROGEL [Suspect]
     Active Substance: METRONIDAZOLE
     Indication: ROSACEA
     Dosage: 1%
     Route: 061
     Dates: start: 2006, end: 2006

REACTIONS (2)
  - Skin irritation [Recovered/Resolved]
  - Pain of skin [Recovered/Resolved]

NARRATIVE: CASE EVENT DATE: 2006
